FAERS Safety Report 5235165-5 (Version None)
Quarter: 2007Q1

REPORT INFORMATION
  Report Type: 
  Country: None (occurrence: None)
  Receive Date: 20070207
  Receipt Date: 20070126
  Transmission Date: 20070707
  Serious: Yes (Death)
  Sender: FDA-Public Use
  Company Number: 2006-03280

PATIENT
  Age: 64 Year
  Sex: Female

DRUGS (20)
  1. VELCADE [Suspect]
     Indication: MULTIPLE MYELOMA
     Dosage: 1.80 MG, INTRAVENOUS
     Route: 042
     Dates: start: 20061209, end: 20061219
  2. DEXAMETHASONE [Concomitant]
  3. ADONA (CARBAZOCHROME SODIUM SULFONATE) [Concomitant]
  4. TRANSAMIN (TRANEXAMIC ACID) [Concomitant]
  5. SOLU-MEDROL [Concomitant]
  6. DOPAMINE HYDROCHLORIDE [Concomitant]
  7. MEROPEN (MEROPENEM) [Concomitant]
  8. FAMOTIDINE [Concomitant]
  9. LASIX [Concomitant]
  10. NEUPOGEN [Concomitant]
  11. FAMOTIDINE [Concomitant]
  12. CLARITHROMYCIN [Concomitant]
  13. ALLOPURINOL [Concomitant]
  14. SELBEX (TEPRENONE) [Concomitant]
  15. SUCRALFATE [Concomitant]
  16. LOSARTAN POTASSIUM [Concomitant]
  17. MAG-LAX (MAGNESIUM HYDROXIDE, PARAFFIN, LIQUID) [Concomitant]
  18. CALONAL (PARACETAMOL) [Concomitant]
  19. RED BLOOD CELLS [Concomitant]
  20. PLATELETS [Concomitant]

REACTIONS (25)
  - ANAEMIA [None]
  - ANORECTAL DISORDER [None]
  - ARTERIAL THROMBOSIS LIMB [None]
  - BACK PAIN [None]
  - CYANOSIS [None]
  - DYSPNOEA [None]
  - ENTEROCOCCAL BACTERAEMIA [None]
  - ENTEROCOCCAL SEPSIS [None]
  - FREQUENT BOWEL MOVEMENTS [None]
  - HAEMODYNAMIC INSTABILITY [None]
  - HAEMORRHAGE [None]
  - HYPOXIA [None]
  - LEUKOPENIA [None]
  - LOSS OF CONSCIOUSNESS [None]
  - MOUTH BREATHING [None]
  - MUSCLE NECROSIS [None]
  - MUSCULOSKELETAL PAIN [None]
  - NAUSEA [None]
  - NECROSIS [None]
  - OXYGEN SATURATION DECREASED [None]
  - PALLOR [None]
  - PATHOGEN RESISTANCE [None]
  - PROCTALGIA [None]
  - SEPTIC SHOCK [None]
  - VOLUME BLOOD DECREASED [None]
